FAERS Safety Report 6115533-X (Version None)
Quarter: 2009Q1

REPORT INFORMATION
  Report Type: 
  Country: None (occurrence: None)
  Receive Date: 20090313
  Receipt Date: 20090303
  Transmission Date: 20090719
  Serious: Yes (Death)
  Sender: FDA-Public Use
  Company Number: NO-ELI_LILLY_AND_COMPANY-NO200903000845

PATIENT
  Age: 31 Year
  Sex: Female
  Weight: 24 kg

DRUGS (1)
  1. ZYPREXA [Suspect]
     Indication: ANOREXIA NERVOSA
     Route: 048

REACTIONS (3)
  - ANOREXIA [None]
  - MALNUTRITION [None]
  - PNEUMONIA [None]
